FAERS Safety Report 8583152-1 (Version None)
Quarter: 2012Q3

REPORT INFORMATION
  Report Type: 
  Country: None (occurrence: None)
  Receive Date: 20120727
  Receipt Date: 20120713
  Transmission Date: 20120928
  Serious: Yes (Disabling)
  Sender: FDA-Public Use
  Company Number: GB-1193097

PATIENT
  Age: 73 Year
  Sex: Female
  Weight: 67 kg

DRUGS (9)
  1. VALSARTAN [Concomitant]
  2. IBUPROFEN [Concomitant]
  3. CODEINE PHOSPHATE [Concomitant]
  4. EZETIMIBE [Concomitant]
  5. ROSUVASTATIN [Concomitant]
  6. MAXIDEX [Suspect]
     Indication: POSTOPERATIVE CARE
     Dosage: (0.1 % TID  OPHTHALMIC)
     Route: 047
     Dates: start: 20110628, end: 20111205
  7. LEVOTHYROXINE SODIUM [Concomitant]
  8. ADCAL [Concomitant]
  9. CARMELLOSE SODIUM [Concomitant]

REACTIONS (6)
  - EYE PAIN [None]
  - OFF LABEL USE [None]
  - QUALITY OF LIFE DECREASED [None]
  - IMPAIRED HEALING [None]
  - OCULAR DISCOMFORT [None]
  - VISUAL IMPAIRMENT [None]
